APPROVED DRUG PRODUCT: CYTOSAR-U
Active Ingredient: CYTARABINE
Strength: 100MG/VIAL
Dosage Form/Route: INJECTABLE;INJECTION
Application: A075206 | Product #001
Applicant: TEVA PHARMACEUTICALS USA
Approved: Dec 30, 1998 | RLD: No | RS: No | Type: DISCN